FAERS Safety Report 13241687 (Version 1)
Quarter: 2017Q1

REPORT INFORMATION
  Report Type: Spontaneous
  Country: US (occurrence: US)
  Receive Date: 20170217
  Receipt Date: 20170217
  Transmission Date: 20170428
  Serious: No
  Sender: FDA-Public Use
  Company Number: US-009507513-1702USA005379

PATIENT
  Age: 33 Year
  Sex: Female

DRUGS (2)
  1. RITUXIMAB [Suspect]
     Active Substance: RITUXIMAB
     Indication: THROMBOTIC THROMBOCYTOPENIC PURPURA
     Dosage: 375 MG/M2, QW
  2. DECADRON [Suspect]
     Active Substance: DEXAMETHASONE
     Indication: THROMBOTIC THROMBOCYTOPENIC PURPURA
     Dosage: 6 MG, QW

REACTIONS (1)
  - Exposure during pregnancy [Recovered/Resolved]
